FAERS Safety Report 9734427 (Version 2)
Quarter: 2013Q4

REPORT INFORMATION
  Report Type: Spontaneous
  Country: US (occurrence: US)
  Receive Date: 20131206
  Receipt Date: 20131206
  Transmission Date: 20140711
  Serious: Yes (Hospitalization)
  Sender: FDA-Public Use
  Company Number: US-BEH-2013036387

PATIENT
  Age: 52 Year
  Sex: Female

DRUGS (12)
  1. ZEMAIRA [Suspect]
     Indication: ALPHA-1 ANTI-TRYPSIN DEFICIENCY
     Route: 042
  2. CELLCEPT [Suspect]
  3. RITUXAN [Suspect]
  4. VICODIN [Concomitant]
  5. BENADRYL [Concomitant]
     Indication: PRURITUS
  6. GABAPENTIN [Concomitant]
  7. DAILY MULTIVITAMIN [Concomitant]
  8. ATARAX [Concomitant]
     Indication: PRURITUS
  9. PREDNISONE [Concomitant]
  10. ZOFRAN [Concomitant]
     Indication: NAUSEA
  11. CELLCEPT [Concomitant]
  12. RITUXAN [Concomitant]

REACTIONS (14)
  - Pneumonia [Unknown]
  - Obstructive airways disorder [Unknown]
  - Atelectasis [Unknown]
  - Dyspnoea [Unknown]
  - Respiratory tract congestion [Unknown]
  - Aspergillus infection [Recovering/Resolving]
  - Infection [Recovering/Resolving]
  - Cough [Unknown]
  - Leukopenia [Unknown]
  - Thrombocytopenia [Unknown]
  - Weight decreased [Unknown]
  - Decreased appetite [Unknown]
  - Night sweats [Unknown]
  - Drug dose omission [Unknown]
